FAERS Safety Report 17386654 (Version 2)
Quarter: 2020Q1

REPORT INFORMATION
  Report Type: Report from Study
  Country: CA (occurrence: CA)
  Receive Date: 20200206
  Receipt Date: 20200207
  Transmission Date: 20200409
  Serious: Yes (Death, Life-Threatening, Hospitalization, Other)
  Sender: FDA-Public Use
  Company Number: CA-ASTRAZENECA-2020SE18233

PATIENT
  Age: 23987 Day
  Sex: Male

DRUGS (32)
  1. NITROGLYCERIN. [Concomitant]
     Active Substance: NITROGLYCERIN
     Dosage: 400 MCG/SPRAY NON-AEROSOL (GRAM) ONE SPRAY ONCE DAILY
  2. EC-NAPROSYN [Concomitant]
     Active Substance: NAPROXEN
     Dosage: ONE TABLET TWO TIMES DAILY
  3. DIAMICRON MR [Concomitant]
     Active Substance: GLICLAZIDE
  4. CRESTOR [Concomitant]
     Active Substance: ROSUVASTATIN CALCIUM
  5. IMFINZI [Suspect]
     Active Substance: DURVALUMAB
     Indication: NON-SMALL CELL LUNG CANCER STAGE IV
     Route: 042
     Dates: end: 20190707
  6. FOSAMAX [Concomitant]
     Active Substance: ALENDRONATE SODIUM
     Dosage: ONE TABLET ONCE A WEEK X SIX MTH30
  7. IMFINZI [Suspect]
     Active Substance: DURVALUMAB
     Indication: NON-SMALL CELL LUNG CANCER STAGE IV
     Route: 042
     Dates: start: 20190429
  8. IMFINZI [Suspect]
     Active Substance: DURVALUMAB
     Indication: NON-SMALL CELL LUNG CANCER STAGE IV
     Dosage: 500MG VIAL,120 MG VIAL
     Route: 042
     Dates: start: 20190702
  9. METFORMIN HCL [Concomitant]
     Active Substance: METFORMIN HYDROCHLORIDE
     Route: 048
  10. IMFINZI [Suspect]
     Active Substance: DURVALUMAB
     Indication: NON-SMALL CELL LUNG CANCER STAGE IV
     Route: 042
     Dates: start: 20180820
  11. IMFINZI [Suspect]
     Active Substance: DURVALUMAB
     Indication: NON-SMALL CELL LUNG CANCER STAGE IV
     Dosage: 500MG VIAL, 120MG VIAL
     Route: 042
     Dates: start: 20190513
  12. TYLENOL WITH CODEINE [Concomitant]
     Active Substance: ACETAMINOPHEN\CODEINE PHOSPHATE
     Dosage: THREE TABLETS (TWO TABLETS PO FOUR TIMES DAILY)
     Route: 048
  13. FLUTICASONE HFA [Concomitant]
     Dosage: FLUTICASONE HFA 250 MG TWO PUFFS TWICE DAILY
  14. FLUTICASONE HFA [Concomitant]
     Dosage: FLUTICASONE NAS 50 MEG/SPRAY TWO SPRAYS EACH NOSTRIL ONCE DAILY
  15. GABAPENTIN. [Concomitant]
     Active Substance: GABAPENTIN
     Dosage: ONE TABLET FOUR TIMES DAILY X 3 MTH30
     Route: 048
  16. AVAMYS [Concomitant]
     Active Substance: FLUTICASONE FUROATE
  17. ATROVENT HFA [Concomitant]
     Active Substance: IPRATROPIUM BROMIDE
  18. METOPROLOL. [Concomitant]
     Active Substance: METOPROLOL
  19. RAMIPRIL. [Concomitant]
     Active Substance: RAMIPRIL
     Route: 048
  20. LODALIS [Concomitant]
     Active Substance: COLESEVELAM HYDROCHLORIDE
     Dosage: TWO TABLET ONCE DAILY X TWO DAYS THEN FOUR TABLET ONCE DAILY X THREE DAYS THEN SIX TABLETS ONCE D...
  21. ZITHROMAX [Concomitant]
     Active Substance: AZITHROMYCIN DIHYDRATE
     Dosage: TWO TABLET ONCE DAILY X ONE DAY(S) THEN ONE TABLET ONCE DAILY X FOUR DAYS
  22. IMFINZI [Suspect]
     Active Substance: DURVALUMAB
     Indication: NON-SMALL CELL LUNG CANCER STAGE IV
     Dosage: 500MG VIAL, 120MG VIAL
     Route: 042
     Dates: start: 20190415, end: 20190702
  23. NADOLOL. [Concomitant]
     Active Substance: NADOLOL
  24. REACTINE [Concomitant]
     Dosage: ONE TABLET ONCE DAILY X 3 MTH 30
  25. FLOVENT HFA [Concomitant]
     Active Substance: FLUTICASONE PROPIONATE
     Dosage: 250 MCG INHALER
  26. VITAMIN D3 [Concomitant]
     Active Substance: CHOLECALCIFEROL
     Dosage: 1000 UNIT
     Route: 048
  27. ATROVENT [Concomitant]
     Active Substance: IPRATROPIUM BROMIDE
     Dosage: 20 MEG INHALE TWO PUFFS EVERY 4 TO 6 HOURS
  28. IMFINZI [Suspect]
     Active Substance: DURVALUMAB
     Indication: NON-SMALL CELL LUNG CANCER STAGE IV
     Dosage: 500MG VIAL,120 MG VIAL
     Route: 042
     Dates: start: 20190610
  29. METOPROLOL. [Concomitant]
     Active Substance: METOPROLOL
     Dosage: INCREASED 250 MG TWO TIMES A DAY
  30. EZETROL [Concomitant]
     Active Substance: EZETIMIBE
     Dosage: ONE TABLET ONCE DAILY X 1 MTH30
  31. IMFINZI [Suspect]
     Active Substance: DURVALUMAB
     Indication: NON-SMALL CELL LUNG CANCER STAGE IV
     Dosage: 500MG VIAL
     Route: 042
     Dates: start: 20190527
  32. VENTOLIN [Concomitant]
     Active Substance: ALBUTEROL SULFATE
     Dosage: 100 MEG INHALE TWO PUFFS EVERY 4 TO 6 HOURS

REACTIONS (12)
  - Hypercalcaemia [Unknown]
  - Cerebral atrophy [Unknown]
  - Pain [Unknown]
  - Facial paralysis [Unknown]
  - Malignant neoplasm progression [Unknown]
  - Ventricular tachycardia [Fatal]
  - Bradycardia [Unknown]
  - Depressed level of consciousness [Unknown]
  - Cerebrovascular accident [Unknown]
  - Hypotension [Unknown]
  - Paraneoplastic syndrome [Unknown]
  - Dyspnoea [Unknown]

NARRATIVE: CASE EVENT DATE: 20190707
